FAERS Safety Report 15298590 (Version 1)
Quarter: 2018Q3

REPORT INFORMATION
  Report Type: Spontaneous
  Country: FR (occurrence: FR)
  Receive Date: 20180820
  Receipt Date: 20180820
  Transmission Date: 20181010
  Serious: Yes (Life-Threatening, Hospitalization, Other)
  Sender: FDA-Public Use
  Company Number: FR-MUNDIPHARMA DS AND PHARMACOVIGILANCE-GBR-2017-0045123

PATIENT
  Age: 75 Year
  Sex: Female

DRUGS (2)
  1. KETAMINE [Concomitant]
     Active Substance: KETAMINE
     Indication: PAIN
  2. OXYNORM [Suspect]
     Active Substance: OXYCODONE HYDROCHLORIDE
     Indication: PRODUCT USED FOR UNKNOWN INDICATION
     Dosage: 14 DF, ONCE A DAY (STRENGHT 20MG)
     Route: 048
     Dates: start: 20170207, end: 20170207

REACTIONS (8)
  - Intentional overdose [Unknown]
  - Dyspnoea [Recovered/Resolved]
  - Suicide attempt [Unknown]
  - Hyponatraemia [Recovered/Resolved]
  - Miosis [Recovered/Resolved]
  - Bradypnoea [Recovered/Resolved]
  - Hyperkalaemia [Unknown]
  - Somnolence [Recovered/Resolved]

NARRATIVE: CASE EVENT DATE: 20170207
